FAERS Safety Report 13332581 (Version 1)
Quarter: 2017Q1

REPORT INFORMATION
  Report Type: Spontaneous
  Country: US (occurrence: US)
  Receive Date: 20170314
  Receipt Date: 20170314
  Transmission Date: 20170428
  Serious: No
  Sender: FDA-Public Use
  Company Number: None

PATIENT

DRUGS (1)
  1. RHOPHYLAC [Suspect]
     Active Substance: HUMAN RHO(D) IMMUNE GLOBULIN
     Indication: RHESUS INCOMPATIBILITY
     Dosage: QUANTITY:1 VIAL?ROUTE - INJECTION?
     Route: 030

REACTIONS (1)
  - Device malfunction [None]

NARRATIVE: CASE EVENT DATE: 20170313
